FAERS Safety Report 9774618 (Version 2)
Quarter: 2014Q1

REPORT INFORMATION
  Report Type: Spontaneous
  Country: US (occurrence: US)
  Receive Date: 20131220
  Receipt Date: 20140210
  Transmission Date: 20141002
  Serious: Yes (Other)
  Sender: FDA-Public Use
  Company Number: US-TEVA-451631USA

PATIENT
  Age: 23 Year
  Sex: Female
  Weight: 62.2 kg

DRUGS (3)
  1. PARAGARD 380A [Suspect]
     Indication: CONTRACEPTION
     Route: 015
     Dates: start: 20131022, end: 20131209
  2. PARAGARD 380A [Suspect]
     Route: 015
     Dates: start: 20131220
  3. GENERESS [Concomitant]
     Indication: CONTRACEPTION

REACTIONS (2)
  - Device dislocation [Recovered/Resolved]
  - Pelvic pain [Unknown]
